FAERS Safety Report 7349448-6 (Version None)
Quarter: 2011Q1

REPORT INFORMATION
  Report Type: 
  Country: None (occurrence: None)
  Receive Date: 20110314
  Receipt Date: 20101115
  Transmission Date: 20110831
  Serious: No
  Sender: FDA-Public Use
  Company Number: US-ABBOTT-10P-163-0685923-00

PATIENT
  Sex: Female
  Weight: 56.75 kg

DRUGS (3)
  1. LEVOTHYROXINE [Concomitant]
     Indication: HYPOTHYROIDISM
  2. PROPRANOLOL [Concomitant]
     Indication: HYPERTENSION
  3. DEPAKOTE [Suspect]
     Indication: PANIC DISORDER
     Dates: start: 20100601, end: 20101105

REACTIONS (1)
  - ALOPECIA [None]
